FAERS Safety Report 10260110 (Version 1)
Quarter: 2014Q2

REPORT INFORMATION
  Report Type: Spontaneous
  Country: US (occurrence: US)
  Receive Date: 20140625
  Receipt Date: 20140625
  Transmission Date: 20141212
  Serious: Yes (Other)
  Sender: FDA-Public Use
  Company Number: US-WATSON-2014-14212

PATIENT
  Age: 65 Year
  Sex: Male

DRUGS (2)
  1. OXACILLIN SODIUM (WATSON LABORATORIES) [Suspect]
     Indication: CELLULITIS STAPHYLOCOCCAL
     Dosage: UNKNOWN
     Route: 065
  2. CEFAZOLIN [Concomitant]
     Indication: CELLULITIS STAPHYLOCOCCAL
     Dosage: UNKNOWN
     Route: 065

REACTIONS (3)
  - Drug eruption [Recovered/Resolved]
  - Haematuria [Unknown]
  - Proteinuria [Unknown]
